FAERS Safety Report 4839509-5 (Version None)
Quarter: 2005Q4

REPORT INFORMATION
  Report Type: 
  Country: None (occurrence: None)
  Receive Date: 20051129
  Receipt Date: 20051118
  Transmission Date: 20060501
  Serious: Yes (Hospitalization)
  Sender: FDA-Public Use
  Company Number: US-MERCK-0511USA03493

PATIENT
  Age: 42 Year
  Sex: Female
  Weight: 86 kg

DRUGS (9)
  1. VIOXX [Suspect]
     Indication: ARTHRITIS
     Route: 048
     Dates: start: 20000101, end: 20040101
  2. LOPRESSOR [Concomitant]
     Route: 065
  3. PLAVIX [Concomitant]
     Route: 065
  4. LIPITOR [Concomitant]
     Route: 065
  5. AVANDIA [Concomitant]
     Route: 065
  6. GLIPIZIDE [Concomitant]
     Route: 065
  7. GLUCOPHAGE [Concomitant]
     Route: 065
  8. IMDUR [Concomitant]
     Route: 065
  9. ACTONEL [Concomitant]
     Route: 065

REACTIONS (4)
  - CARDIAC DISORDER [None]
  - INJURY [None]
  - LIMB INJURY [None]
  - MYOCARDIAL INFARCTION [None]
